FAERS Safety Report 9648798 (Version 1)
Quarter: 2013Q4

REPORT INFORMATION
  Report Type: Spontaneous
  Country: JP (occurrence: JP)
  Receive Date: 20131028
  Receipt Date: 20131028
  Transmission Date: 20140711
  Serious: Yes (Death)
  Sender: FDA-Public Use
  Company Number: JP-ASTRAZENECA-2013SE78743

PATIENT
  Age: 68 Year
  Sex: Male

DRUGS (9)
  1. QUETIAPINE FUMARATE [Suspect]
     Indication: DELIRIUM
     Route: 048
  2. QUETIAPINE FUMARATE [Suspect]
     Indication: DELIRIUM
     Route: 048
  3. QUETIAPINE FUMARATE [Suspect]
     Indication: DELIRIUM
     Route: 048
  4. DANTRIUM(NON-AZ PRODUCT) [Suspect]
     Indication: NEUROLEPTIC MALIGNANT SYNDROME
     Dates: start: 2010
  5. AMANTADINE HYDROCHLORIDE [Suspect]
     Indication: VASCULAR PARKINSONISM
     Route: 048
  6. AMANTADINE HYDROCHLORIDE [Suspect]
     Indication: VASCULAR PARKINSONISM
     Route: 048
  7. AMANTADINE HYDROCHLORIDE [Suspect]
     Indication: VASCULAR PARKINSONISM
     Route: 048
  8. LEVODOPA [Suspect]
     Indication: VASCULAR PARKINSONISM
     Route: 048
  9. RISPERIDONE [Suspect]
     Indication: DELIRIUM
     Route: 048

REACTIONS (2)
  - Neuroleptic malignant syndrome [Fatal]
  - Off label use [Unknown]
